FAERS Safety Report 8540781-9 (Version None)
Quarter: 2012Q3

REPORT INFORMATION
  Report Type: 
  Country: None (occurrence: None)
  Receive Date: 20120726
  Receipt Date: 20120717
  Transmission Date: 20120928
  Serious: Yes (Other)
  Sender: FDA-Public Use
  Company Number: US-ASTRAZENECA-2012SE39288

PATIENT
  Age: 86 Year
  Sex: Male

DRUGS (3)
  1. BRILINTA [Suspect]
     Indication: ANTIPLATELET THERAPY
     Route: 048
     Dates: end: 20120522
  2. BRILINTA [Suspect]
     Indication: MYOCARDIAL INFARCTION
     Route: 048
     Dates: end: 20120522
  3. BUNCH OF MEDICATIONS [Concomitant]

REACTIONS (4)
  - SKIN EXFOLIATION [None]
  - DRUG HYPERSENSITIVITY [None]
  - RASH PRURITIC [None]
  - SKIN WARM [None]
